FAERS Safety Report 9952801 (Version 1)
Quarter: 2014Q1

REPORT INFORMATION
  Report Type: Spontaneous
  Country: GB (occurrence: GB)
  Receive Date: 20140304
  Receipt Date: 20140304
  Transmission Date: 20141002
  Serious: Yes (Hospitalization)
  Sender: FDA-Public Use
  Company Number: GB-BAXTER-2014BAX010430

PATIENT
  Sex: Male

DRUGS (3)
  1. DIANEAL PD4 GLUCOSE 1.36% W/V / 13.6 MG/ML [Suspect]
     Indication: RENAL FAILURE
     Route: 033
  2. DIANEAL [Suspect]
     Indication: RENAL FAILURE
     Route: 033
     Dates: end: 2014
  3. EXTRANEAL (ICODEXTRIN 7.5%) SOLUTION FOR PERITONEAL DIALYSIS [Suspect]
     Indication: RENAL FAILURE
     Route: 033

REACTIONS (4)
  - Lower respiratory tract infection [Unknown]
  - Hypertension [Unknown]
  - Fluid overload [Unknown]
  - Fluid retention [Unknown]
